FAERS Safety Report 6264868-9 (Version None)
Quarter: 2009Q3

REPORT INFORMATION
  Report Type: 
  Country: None (occurrence: None)
  Receive Date: 20090713
  Receipt Date: 20070517
  Transmission Date: 20100115
  Serious: Yes (Hospitalization, Other)
  Sender: FDA-Public Use
  Company Number: US-ASTRAZENECA-2006UW24995

PATIENT
  Age: 45 Year
  Sex: Male
  Weight: 78.9 kg

DRUGS (5)
  1. SEROQUEL [Suspect]
     Route: 048
     Dates: start: 20061117
  2. ALPRAZOLAM [Concomitant]
     Route: 065
  3. LANTUS [Concomitant]
     Dosage: 100 UNITS/ML
     Route: 065
  4. GEODON [Concomitant]
     Route: 065
  5. LISINOPRIL [Concomitant]
     Route: 065

REACTIONS (2)
  - DIABETES MELLITUS [None]
  - DIABETIC KETOACIDOSIS [None]
